FAERS Safety Report 9127798 (Version 1)
Quarter: 2013Q1

REPORT INFORMATION
  Report Type: Spontaneous
  Country: US (occurrence: US)
  Receive Date: 20130228
  Receipt Date: 20130228
  Transmission Date: 20140127
  Serious: No
  Sender: FDA-Public Use
  Company Number: US-GLAXOSMITHKLINE-A0999966A

PATIENT
  Age: 65 Year
  Sex: Female

DRUGS (3)
  1. LAMICTAL [Suspect]
     Indication: AFFECTIVE DISORDER
     Dosage: 100MG PER DAY
     Route: 048
     Dates: start: 2009
  2. SEROQUEL [Concomitant]
  3. ESTROGEN [Concomitant]

REACTIONS (2)
  - Gingival bleeding [Not Recovered/Not Resolved]
  - Bone loss [Unknown]
